FAERS Safety Report 8315530-X (Version None)
Quarter: 2012Q2

REPORT INFORMATION
  Report Type: 
  Country: None (occurrence: None)
  Receive Date: 20120426
  Receipt Date: 20120424
  Transmission Date: 20120825
  Serious: Yes (Other)
  Sender: FDA-Public Use
  Company Number: US-PFIZER INC-2012101758

PATIENT
  Sex: Female
  Weight: 108.8 kg

DRUGS (5)
  1. BENAZEPRIL [Concomitant]
     Indication: HYPERTENSION
     Dosage: UNK, 2X/DAY
  2. LIPITOR [Suspect]
     Indication: ARTERIAL OCCLUSIVE DISEASE
  3. LIPITOR [Suspect]
     Indication: HYPERTENSION
  4. AMLODIPINE [Concomitant]
     Indication: HYPERTENSION
     Dosage: UNK, 2X/DAY
  5. LIPITOR [Suspect]
     Indication: BLOOD CHOLESTEROL INCREASED
     Dosage: 20 MG, 1X/DAY
     Route: 048
     Dates: end: 20120201

REACTIONS (1)
  - MYASTHENIA GRAVIS [None]
